FAERS Safety Report 22383381 (Version 2)
Quarter: 2023Q2

REPORT INFORMATION
  Report Type: Spontaneous
  Country: FR (occurrence: FR)
  Receive Date: 20230530
  Receipt Date: 20230607
  Transmission Date: 20230721
  Serious: Yes (Other)
  Sender: FDA-Public Use
  Company Number: FR-AMERICAN REGENT INC-2023001275

PATIENT
  Age: 86 Year
  Sex: Female

DRUGS (2)
  1. VENOFER [Suspect]
     Active Substance: IRON SUCROSE
     Indication: Iron deficiency
     Dosage: 1 INFUSION PER DAY WAS GIVEN FOR 2 DAYS (1 IN 1 D)
     Dates: start: 20230415, end: 20230416
  2. NEO-MERCAZOLE [Suspect]
     Active Substance: CARBIMAZOLE
     Indication: Hyperthyroidism
     Dosage: UNSPECIFIED DOSE
     Route: 048
     Dates: start: 20230413

REACTIONS (2)
  - Cholestasis [Not Recovered/Not Resolved]
  - Chronic inflammatory response syndrome [Recovering/Resolving]

NARRATIVE: CASE EVENT DATE: 20230417
